FAERS Safety Report 6482918-1 (Version None)
Quarter: 2009Q4

REPORT INFORMATION
  Report Type: 
  Country: None (occurrence: None)
  Receive Date: 20091204
  Receipt Date: 20091125
  Transmission Date: 20100525
  Serious: Yes (Hospitalization)
  Sender: FDA-Public Use
  Company Number: 2009SU0264

PATIENT
  Age: 71 Year
  Sex: Female

DRUGS (2)
  1. NISOLDIPINE [Suspect]
     Dates: end: 20020101
  2. CETIRIZINE HYDROCHLORIDE [Concomitant]

REACTIONS (1)
  - LIVER DISORDER [None]
